FAERS Safety Report 8460246-2 (Version None)
Quarter: 2012Q2

REPORT INFORMATION
  Report Type: 
  Country: None (occurrence: None)
  Receive Date: 20120622
  Receipt Date: 20120618
  Transmission Date: 20120825
  Serious: Yes (Hospitalization, Other)
  Sender: FDA-Public Use
  Company Number: JP-TEVA-338966USA

PATIENT
  Age: 67 Year
  Sex: Male
  Weight: 57.5 kg

DRUGS (3)
  1. RITUXIMAB [Suspect]
     Indication: NON-HODGKIN'S LYMPHOMA
     Route: 042
     Dates: start: 20111026, end: 20120329
  2. TREANDA [Suspect]
     Indication: NON-HODGKIN'S LYMPHOMA
     Dosage: 120 MG/M2;
     Route: 042
     Dates: start: 20111026
  3. CIPROFLOXACIN HCL [Concomitant]
     Indication: INFECTION
     Dosage: 900 MILLIGRAM;
     Dates: start: 20120420, end: 20120420

REACTIONS (3)
  - STAPHYLOCOCCAL SEPSIS [None]
  - PNEUMOCYSTIS JIROVECI PNEUMONIA [None]
  - CYTOMEGALOVIRUS INFECTION [None]
